FAERS Safety Report 8301809-4 (Version None)
Quarter: 2012Q2

REPORT INFORMATION
  Report Type: 
  Country: None (occurrence: None)
  Receive Date: 20120420
  Receipt Date: 20120412
  Transmission Date: 20120825
  Serious: Yes (Hospitalization, Other)
  Sender: FDA-Public Use
  Company Number: US-AMGEN-USASP2012018551

PATIENT
  Age: 66 Year
  Sex: Female

DRUGS (19)
  1. ATENOLOL [Concomitant]
     Dosage: UNK
  2. M.V.I. [Concomitant]
     Dosage: UNK
  3. FIBROCIT [Concomitant]
     Dosage: UNK
  4. IRBESARTAN + HYDROCHLOROTHIAZIDE [Concomitant]
     Dosage: UNK
  5. PROTONIX [Concomitant]
     Dosage: UNK
  6. ATIVAN [Concomitant]
     Dosage: UNK
  7. VICODIN [Concomitant]
     Dosage: UNK
  8. ENBREL [Suspect]
     Indication: RHEUMATOID ARTHRITIS
     Dosage: 50 MG, QWK
     Route: 058
     Dates: start: 20111209, end: 20120228
  9. FLEXERIL [Concomitant]
     Dosage: UNK
  10. ZYRTEC [Concomitant]
     Dosage: UNK
  11. LUNESTA [Concomitant]
     Dosage: UNK
  12. NORVASC [Concomitant]
     Dosage: UNK
  13. CLONIDINE [Concomitant]
     Dosage: UNK
  14. LOVAZA [Concomitant]
     Dosage: UNK
  15. LIPITOR [Concomitant]
     Dosage: UNK
  16. PREDNISONE TAB [Concomitant]
     Dosage: UNK
  17. GLYBURIDE [Concomitant]
     Dosage: UNK
  18. ULTRAM [Concomitant]
     Dosage: UNK
  19. AMLODIPINE [Concomitant]
     Dosage: UNK

REACTIONS (6)
  - VULVOVAGINAL PRURITUS [None]
  - NEUROPATHY PERIPHERAL [None]
  - NAUSEA [None]
  - GASTROOESOPHAGEAL REFLUX DISEASE [None]
  - ANGINA PECTORIS [None]
  - DYSPEPSIA [None]
